FAERS Safety Report 10946190 (Version 3)
Quarter: 2015Q2

REPORT INFORMATION
  Report Type: Spontaneous
  Country: US (occurrence: US)
  Receive Date: 20150323
  Receipt Date: 20150413
  Transmission Date: 20150821
  Serious: Yes (Hospitalization)
  Sender: FDA-Public Use
  Company Number: US-BAUSCH-BL-2015-009322

PATIENT
  Age: 66 Year
  Sex: Female

DRUGS (2)
  1. XENAZINE [Suspect]
     Active Substance: TETRABENAZINE
     Indication: BACK PAIN
     Route: 048
     Dates: start: 20140512
  2. XENAZINE [Suspect]
     Active Substance: TETRABENAZINE
     Indication: DEPRESSION

REACTIONS (3)
  - Syncope [Unknown]
  - Intentional product use issue [Not Recovered/Not Resolved]
  - Fall [Recovered/Resolved]

NARRATIVE: CASE EVENT DATE: 20140512
